FAERS Safety Report 7218746-9 (Version None)
Quarter: 2011Q1

REPORT INFORMATION
  Report Type: 
  Country: None (occurrence: None)
  Receive Date: 20110110
  Receipt Date: 20100305
  Transmission Date: 20110831
  Serious: No
  Sender: FDA-Public Use
  Company Number: US-ABBOTT-10P-163-0631888-00

PATIENT
  Sex: Female
  Weight: 54.026 kg

DRUGS (1)
  1. VICODIN [Suspect]
     Indication: FOOT OPERATION
     Route: 048
     Dates: start: 19990101, end: 19990101

REACTIONS (2)
  - NAUSEA [None]
  - HALLUCINATION [None]
